FAERS Safety Report 13731483 (Version 1)
Quarter: 2017Q3

REPORT INFORMATION
  Report Type: Report from Study
  Country: BR (occurrence: BR)
  Receive Date: 20170707
  Receipt Date: 20170707
  Transmission Date: 20171127
  Serious: Yes (Hospitalization)
  Sender: FDA-Public Use
  Company Number: BR-EISAI MEDICAL RESEARCH-E7080-01154-CLI-BR

PATIENT
  Age: 73 Year
  Sex: Female
  Weight: 54 kg

DRUGS (19)
  1. LENVATINIB [Suspect]
     Active Substance: LENVATINIB
     Route: 048
     Dates: start: 20140602, end: 201706
  2. LENVATINIB [Suspect]
     Active Substance: LENVATINIB
     Indication: THYROID CANCER
     Dosage: PLACEBO
     Route: 048
     Dates: start: 20120816, end: 20121210
  3. LENVATINIB [Suspect]
     Active Substance: LENVATINIB
     Dosage: PLACEBO
     Route: 048
     Dates: start: 20130228, end: 20131001
  4. LENVATINIB [Suspect]
     Active Substance: LENVATINIB
     Route: 048
     Dates: start: 20140326, end: 20140420
  5. OMEPRAZOLE. [Concomitant]
     Active Substance: OMEPRAZOLE
  6. LENVATINIB [Suspect]
     Active Substance: LENVATINIB
     Route: 048
     Dates: start: 20131002, end: 20131222
  7. LENVATINIB [Suspect]
     Active Substance: LENVATINIB
     Route: 048
     Dates: start: 20140110, end: 20140301
  8. LEVOTHYROXINE. [Concomitant]
     Active Substance: LEVOTHYROXINE
  9. MAGNESIUM SULFATE. [Concomitant]
     Active Substance: MAGNESIUM SULFATE
  10. BROMIDE [Concomitant]
  11. NYSTATIN. [Concomitant]
     Active Substance: NYSTATIN
  12. ENALAPRIL [Concomitant]
     Active Substance: ENALAPRIL
  13. AMLODIPINE [Concomitant]
     Active Substance: AMLODIPINE BESYLATE
  14. PROPRANOLOL [Concomitant]
     Active Substance: PROPRANOLOL HYDROCHLORIDE
  15. LENVATINIB [Suspect]
     Active Substance: LENVATINIB
     Route: 048
     Dates: start: 20140430, end: 20140519
  16. CARVEDILOL. [Concomitant]
     Active Substance: CARVEDILOL
  17. CAPTOPRIL. [Concomitant]
     Active Substance: CAPTOPRIL
  18. LENVATINIB [Suspect]
     Active Substance: LENVATINIB
     Dosage: PLACEBO
     Route: 048
     Dates: start: 20121225, end: 20130210
  19. ENOXAPARIN [Concomitant]
     Active Substance: ENOXAPARIN

REACTIONS (7)
  - Transient ischaemic attack [Recovered/Resolved]
  - Pyrexia [Recovered/Resolved]
  - Lung infection [Recovered/Resolved]
  - Phlebitis infective [Recovered/Resolved]
  - Dehydration [Recovered/Resolved]
  - Syncope [Recovered/Resolved]
  - Gastroenteritis [Recovered/Resolved]

NARRATIVE: CASE EVENT DATE: 20130213
